FAERS Safety Report 9196816 (Version 1)
Quarter: 2013Q1

REPORT INFORMATION
  Report Type: Spontaneous
  Country: GB (occurrence: GB)
  Receive Date: 20130328
  Receipt Date: 20130328
  Transmission Date: 20140127
  Serious: Yes (Other)
  Sender: FDA-Public Use
  Company Number: GB-GALDERMA-GB13000578

PATIENT
  Age: 62 Year
  Sex: 0

DRUGS (1)
  1. EFRACEA [Suspect]
     Indication: PRODUCT USED FOR UNKNOWN INDICATION
     Route: 048
     Dates: start: 2010

REACTIONS (2)
  - Blood pressure increased [Unknown]
  - Blood pressure decreased [Unknown]
